FAERS Safety Report 7714533-3 (Version None)
Quarter: 2011Q3

REPORT INFORMATION
  Report Type: 
  Country: None (occurrence: None)
  Receive Date: 20110804
  Receipt Date: 20110525
  Transmission Date: 20111222
  Serious: No
  Sender: FDA-Public Use
  Company Number: 2011-07226

PATIENT
  Age: 77 Year
  Sex: Male
  Weight: 88.4 kg

DRUGS (1)
  1. RAPAFLO [Suspect]
     Indication: URINE FLOW DECREASED
     Dosage: 8 MG, DAILY, ORAL
     Route: 048
     Dates: start: 20110420, end: 20110504

REACTIONS (1)
  - RASH PRURITIC [None]
